FAERS Safety Report 12889504 (Version 8)
Quarter: 2017Q4

REPORT INFORMATION
  Report Type: Spontaneous
  Country: US (occurrence: US)
  Receive Date: 20161027
  Receipt Date: 20171017
  Transmission Date: 20180320
  Serious: Yes (Hospitalization, Other)
  Sender: FDA-Public Use
  Company Number: US-BAYER-2016-203806

PATIENT
  Age: 10 Year
  Sex: Male

DRUGS (9)
  1. KOGENATE FS [Suspect]
     Active Substance: ANTIHEMOPHILIC FACTOR, HUMAN RECOMBINANT
     Indication: FACTOR VIII DEFICIENCY
     Dosage: 2000 U, PRN
     Route: 042
     Dates: start: 20170818
  2. KOGENATE FS [Suspect]
     Active Substance: ANTIHEMOPHILIC FACTOR, HUMAN RECOMBINANT
     Indication: HAEMORRHAGE PROPHYLAXIS
     Dosage: 1000 U, TIW PROPHYLAXIS
     Route: 042
     Dates: start: 20160614
  3. KOGENATE FS [Suspect]
     Active Substance: ANTIHEMOPHILIC FACTOR, HUMAN RECOMBINANT
     Indication: FACTOR VIII DEFICIENCY
     Dosage: 2000 U, PRN MINOR INJURY
     Route: 042
     Dates: start: 20170119
  4. KOGENATE FS [Suspect]
     Active Substance: ANTIHEMOPHILIC FACTOR, HUMAN RECOMBINANT
     Indication: FACTOR VIII DEFICIENCY
     Dosage: 1000 U, TIW PROPHYLAXIS
     Route: 042
     Dates: start: 20170710
  5. KOGENATE FS [Suspect]
     Active Substance: ANTIHEMOPHILIC FACTOR, HUMAN RECOMBINANT
     Indication: FACTOR VIII DEFICIENCY
     Dosage: 862 U, TIW
     Route: 042
     Dates: start: 20170818
  6. KOGENATE FS [Suspect]
     Active Substance: ANTIHEMOPHILIC FACTOR, HUMAN RECOMBINANT
     Indication: FACTOR VIII DEFICIENCY
     Dosage: 1 MAJOR DOSE TO TREAT GI BLEED
     Route: 042
     Dates: start: 20170920, end: 20170920
  7. KOGENATE FS [Suspect]
     Active Substance: ANTIHEMOPHILIC FACTOR, HUMAN RECOMBINANT
     Indication: FACTOR VIII DEFICIENCY
     Dosage: 850 U, TIW
     Route: 042
     Dates: start: 20160913
  8. KOGENATE FS [Suspect]
     Active Substance: ANTIHEMOPHILIC FACTOR, HUMAN RECOMBINANT
     Indication: FACTOR VIII DEFICIENCY
     Dosage: 2000 U, RECEIVED 4 DOSES
     Route: 042
     Dates: start: 20170730
  9. KOGENATE FS [Suspect]
     Active Substance: ANTIHEMOPHILIC FACTOR, HUMAN RECOMBINANT
     Indication: FACTOR VIII DEFICIENCY
     Dosage: 1825 U, PRN
     Route: 042
     Dates: start: 20170912

REACTIONS (10)
  - Oesophageal haemorrhage [None]
  - Internal haemorrhage [None]
  - Internal haemorrhage [None]
  - Head injury [Recovered/Resolved]
  - Abdominal pain [None]
  - Pharyngeal haemorrhage [None]
  - Gastrointestinal haemorrhage [None]
  - Constipation [None]
  - Gastrointestinal haemorrhage [None]
  - Fall [Recovered/Resolved]

NARRATIVE: CASE EVENT DATE: 20161016
